FAERS Safety Report 9746258 (Version 2)
Quarter: 2013Q4

REPORT INFORMATION
  Report Type: Spontaneous
  Country: IN (occurrence: None)
  Receive Date: 20131205
  Receipt Date: 20131220
  Transmission Date: 20140711
  Serious: Yes (Hospitalization, Other)
  Sender: FDA-Public Use
  Company Number: IN-013904

PATIENT
  Age: 30 Year
  Sex: Female

DRUGS (1)
  1. GESTONETTE [Suspect]
     Indication: SUPPORTIVE CARE
     Route: 067

REACTIONS (3)
  - Vulvovaginal ulceration [None]
  - Vaginal oedema [None]
  - Vulvovaginal pruritus [None]
